FAERS Safety Report 5602382-1 (Version None)
Quarter: 2008Q1

REPORT INFORMATION
  Report Type: 
  Country: None (occurrence: None)
  Receive Date: 20080125
  Receipt Date: 20080117
  Transmission Date: 20080703
  Serious: Yes (Other)
  Sender: FDA-Public Use
  Company Number: CN-JNJFOC-20080104408

PATIENT
  Age: 23 Month
  Sex: Female
  Weight: 11 kg

DRUGS (1)
  1. ANTUSS INFANTS DECONGESTANT + COUGH [Suspect]
     Indication: ACCIDENTAL EXPOSURE
     Dosage: 5-6 ML
     Route: 048

REACTIONS (2)
  - ACCIDENTAL DRUG INTAKE BY CHILD [None]
  - INCORRECT DOSE ADMINISTERED [None]
